FAERS Safety Report 4889968-7 (Version None)
Quarter: 2006Q1

REPORT INFORMATION
  Report Type: 
  Country: None (occurrence: None)
  Receive Date: 20060123
  Receipt Date: 20060123
  Transmission Date: 20060701
  Serious: Yes (Other)
  Sender: FDA-Public Use
  Company Number: None

PATIENT
  Age: 52 Year
  Sex: Female
  Weight: 88.4514 kg

DRUGS (1)
  1. KETEK [Suspect]
     Indication: SINUSITIS
     Dosage: TWO DAILY PO
     Route: 048
     Dates: start: 20060109, end: 20060113

REACTIONS (3)
  - ABDOMINAL PAIN UPPER [None]
  - HEART RATE INCREASED [None]
  - PYREXIA [None]
